FAERS Safety Report 4939329-7 (Version None)
Quarter: 2006Q1

REPORT INFORMATION
  Report Type: 
  Country: None (occurrence: None)
  Receive Date: 20060306
  Receipt Date: 20060215
  Transmission Date: 20060701
  Serious: Yes (Other)
  Sender: FDA-Public Use
  Company Number: 222644

PATIENT
  Sex: Female

DRUGS (1)
  1. MABTHERA (RITUXIMAB) CONC FOR SOLUTION FOR INFUSION [Suspect]
     Indication: FACTOR VIII DEFICIENCY

REACTIONS (2)
  - ANAPHYLACTIC REACTION [None]
  - DISEASE RECURRENCE [None]
